FAERS Safety Report 4606661-6 (Version None)
Quarter: 2005Q1

REPORT INFORMATION
  Report Type: 
  Country: None (occurrence: None)
  Receive Date: 20050314
  Receipt Date: 20050302
  Transmission Date: 20050727
  Serious: Yes (Hospitalization)
  Sender: FDA-Public Use
  Company Number: US-JNJFOC-20050300819

PATIENT
  Sex: Female
  Weight: 94.35 kg

DRUGS (10)
  1. REMICADE [Suspect]
     Route: 042
     Dates: start: 20040401, end: 20050101
  2. REMICADE [Suspect]
     Indication: RHEUMATOID ARTHRITIS
     Route: 042
     Dates: start: 20040401, end: 20050101
  3. METHOTREXATE [Concomitant]
     Indication: RHEUMATOID ARTHRITIS
  4. GLUCOPHAGE [Concomitant]
  5. FOLIC ACID [Concomitant]
     Indication: RHEUMATOID ARTHRITIS
  6. LIPITOR [Concomitant]
  7. CLARINEX [Concomitant]
  8. CELECOXIB [Concomitant]
     Indication: ARTHRITIS
  9. TARKA [Concomitant]
  10. TARKA [Concomitant]
     Indication: BLOOD PRESSURE

REACTIONS (3)
  - BREAST CYST [None]
  - BREAST INFECTION [None]
  - BRONCHITIS [None]
